FAERS Safety Report 9339006 (Version 2)
Quarter: 2013Q3

REPORT INFORMATION
  Report Type: Spontaneous
  Country: US (occurrence: US)
  Receive Date: 20130610
  Receipt Date: 20130708
  Transmission Date: 20140515
  Serious: Yes (Hospitalization, Other)
  Sender: FDA-Public Use
  Company Number: US-ELI_LILLY_AND_COMPANY-US201306000483

PATIENT
  Age: 87 Year
  Sex: Female

DRUGS (2)
  1. HUMULIN 30% REGULAR, 70% NPH [Suspect]
     Indication: DIABETES MELLITUS
     Dosage: 20 U, EACH MORNING
  2. HUMULIN 30% REGULAR, 70% NPH [Suspect]
     Dosage: 21 U, EACH EVENING

REACTIONS (9)
  - Hip fracture [Unknown]
  - Fall [Unknown]
  - Lower limb fracture [Unknown]
  - Rib fracture [Unknown]
  - Foot fracture [Unknown]
  - Pharyngeal mass [Unknown]
  - Hypoacusis [Unknown]
  - Mobility decreased [Unknown]
  - Balance disorder [Unknown]
